FAERS Safety Report 14910689 (Version 2)
Quarter: 2018Q4

REPORT INFORMATION
  Report Type: Spontaneous
  Country: US (occurrence: US)
  Receive Date: 20180517
  Receipt Date: 20181122
  Transmission Date: 20190204
  Serious: Yes (Death)
  Sender: FDA-Public Use
  Company Number: US-PFIZER INC-2017554476

PATIENT
  Age: 41 Year
  Sex: Female
  Weight: 50 kg

DRUGS (12)
  1. DOCETAXEL. [Suspect]
     Active Substance: DOCETAXEL
     Indication: BREAST CANCER FEMALE
  2. DOCETAXEL. [Suspect]
     Active Substance: DOCETAXEL
     Indication: ADRENAL GLAND CANCER
  3. TAXOTERE [Suspect]
     Active Substance: DOCETAXEL
     Indication: BRAIN NEOPLASM MALIGNANT
  4. TAXOTERE [Suspect]
     Active Substance: DOCETAXEL
     Indication: MALIGNANT NEOPLASM OF SPINAL CORD
  5. TAXOTERE [Suspect]
     Active Substance: DOCETAXEL
     Indication: ADRENAL GLAND CANCER
  6. TAXOTERE [Suspect]
     Active Substance: DOCETAXEL
     Indication: METASTASES TO BONE
  7. DOCETAXEL. [Suspect]
     Active Substance: DOCETAXEL
     Indication: CHEMOTHERAPY
     Dosage: UNK
     Dates: start: 201411, end: 201412
  8. DOCETAXEL. [Suspect]
     Active Substance: DOCETAXEL
     Indication: BRAIN NEOPLASM MALIGNANT
  9. TAXOTERE [Suspect]
     Active Substance: DOCETAXEL
     Indication: CHEMOTHERAPY
     Dosage: UNK
     Dates: start: 201411, end: 201412
  10. TAXOTERE [Suspect]
     Active Substance: DOCETAXEL
     Indication: BREAST CANCER FEMALE
  11. DOCETAXEL. [Suspect]
     Active Substance: DOCETAXEL
     Indication: MALIGNANT NEOPLASM OF SPINAL CORD
  12. DOCETAXEL. [Suspect]
     Active Substance: DOCETAXEL
     Indication: METASTASES TO BONE

REACTIONS (5)
  - Alopecia [Not Recovered/Not Resolved]
  - Madarosis [Not Recovered/Not Resolved]
  - Hair disorder [Not Recovered/Not Resolved]
  - Hair colour changes [Not Recovered/Not Resolved]
  - Hair texture abnormal [Not Recovered/Not Resolved]

NARRATIVE: CASE EVENT DATE: 2014
